FAERS Safety Report 19748527 (Version 1)
Quarter: 2021Q3

REPORT INFORMATION
  Report Type: Spontaneous
  Country: GB (occurrence: GB)
  Receive Date: 20210826
  Receipt Date: 20210826
  Transmission Date: 20211014
  Serious: Yes (Other)
  Sender: FDA-Public Use
  Company Number: GB-ACCORD-236340

PATIENT
  Age: 87 Year
  Sex: Female
  Weight: 54 kg

DRUGS (11)
  1. BISOPROLOL [Concomitant]
     Active Substance: BISOPROLOL
     Dates: start: 20201023
  2. EZETIMIBE. [Concomitant]
     Active Substance: EZETIMIBE
     Dates: start: 20201023
  3. ACETYLSALICYLIC ACID [Concomitant]
     Active Substance: ASPIRIN
     Dates: start: 20201023
  4. GLYCERYL TRINITRATE [Concomitant]
     Active Substance: NITROGLYCERIN
     Dosage: SPRAY, AS NECESSARY
     Route: 060
     Dates: start: 20201023
  5. SALBUTAMOL [Concomitant]
     Active Substance: ALBUTEROL
     Dosage: 1?2 DOSES THROUGH SPACER DEVICE UP TO FOU...
     Route: 055
     Dates: start: 20201023
  6. PREDNISOLONE. [Concomitant]
     Active Substance: PREDNISOLONE
     Dosage: AS DIRECTED.
     Dates: start: 20210426
  7. CANDESARTAN. [Concomitant]
     Active Substance: CANDESARTAN
     Dates: start: 20210811
  8. ESOMEPRAZOLE/ESOMEPRAZOLE MAGNESIUM/ESOMEPRAZOLE SODIUM [Concomitant]
     Active Substance: ESOMEPRAZOLE
     Indication: GASTRIC DISORDER
     Dates: start: 20201026
  9. ALENDRONATE SODIUM/ALENDRONIC ACID [Concomitant]
     Active Substance: ALENDRONATE SODIUM
     Dates: start: 20210127
  10. THEICAL?D3 [Concomitant]
     Dates: start: 20210127
  11. LISINOPRIL. [Suspect]
     Active Substance: LISINOPRIL
     Indication: PRODUCT USED FOR UNKNOWN INDICATION
     Dates: start: 20201023

REACTIONS (2)
  - Hypokalaemia [Recovering/Resolving]
  - Condition aggravated [Recovering/Resolving]
